FAERS Safety Report 24022407 (Version 3)
Quarter: 2024Q3

REPORT INFORMATION
  Report Type: Report from Study
  Country: LT (occurrence: LT)
  Receive Date: 20240627
  Receipt Date: 20240710
  Transmission Date: 20241016
  Serious: No
  Sender: ROCHE
  Company Number: LT-ROCHE-3557773

PATIENT
  Age: 59 Year
  Sex: Female
  Weight: 72.0 kg

DRUGS (15)
  1. ALECTINIB [Suspect]
     Active Substance: ALECTINIB
     Indication: Lung cancer metastatic
     Route: 048
     Dates: start: 20210817
  2. ZOFENOPRIL [Concomitant]
     Active Substance: ZOFENOPRIL
     Indication: Essential hypertension
     Route: 048
  3. OMEPRAZOLE [Concomitant]
     Active Substance: OMEPRAZOLE
     Dosage: FREQUENCY TEXT:QD
     Route: 048
     Dates: start: 20210710
  4. CARBAMAZEPINE [Concomitant]
     Active Substance: CARBAMAZEPINE
     Indication: Epilepsy
     Route: 048
     Dates: start: 20220103
  5. CARBAMAZEPINE [Concomitant]
     Active Substance: CARBAMAZEPINE
     Route: 048
     Dates: start: 20210710, end: 20220102
  6. MIRTAZAPINE [Concomitant]
     Active Substance: MIRTAZAPINE
     Indication: Insomnia
     Route: 048
     Dates: start: 20220124
  7. CARBOPLATIN [Concomitant]
     Active Substance: CARBOPLATIN
  8. PACLITAXEL [Concomitant]
     Active Substance: PACLITAXEL
  9. DEXAMETHASONE [Concomitant]
     Active Substance: DEXAMETHASONE
     Route: 048
     Dates: start: 20210710, end: 20211126
  10. OMEPRAZOLE [Concomitant]
     Active Substance: OMEPRAZOLE
     Route: 048
     Dates: start: 20210710
  11. ZOFISTAR [Concomitant]
     Indication: Pneumonia
     Route: 048
     Dates: start: 20211222, end: 20211230
  12. METOPROLOLI [Concomitant]
     Indication: Pneumonia
     Route: 048
     Dates: start: 20211222, end: 20211230
  13. FERRUM LEK [Concomitant]
     Indication: Pneumonia
     Route: 030
     Dates: start: 20211222, end: 20211230
  14. PREDNISOLONE [Concomitant]
     Active Substance: PREDNISOLONE
     Route: 048
     Dates: start: 20211127, end: 20211218
  15. ONDANSETRON [Concomitant]
     Active Substance: ONDANSETRON
     Route: 048
     Dates: start: 20211126

REACTIONS (1)
  - Nausea [Not Recovered/Not Resolved]

NARRATIVE: CASE EVENT DATE: 20230901
